FAERS Safety Report 15711455 (Version 2)
Quarter: 2019Q1

REPORT INFORMATION
  Report Type: Spontaneous
  Country: US (occurrence: US)
  Receive Date: 20181211
  Receipt Date: 20190130
  Transmission Date: 20190417
  Serious: Yes (Other)
  Sender: FDA-Public Use
  Company Number: US-DSJP-DSU-2017-142223

PATIENT

DRUGS (1)
  1. BENICAR [Suspect]
     Active Substance: OLMESARTAN MEDOXOMIL
     Indication: PRODUCT USED FOR UNKNOWN INDICATION
     Dosage: UNK
     Dates: start: 20070101

REACTIONS (5)
  - Acquired oesophageal web [Unknown]
  - Hiatus hernia [Unknown]
  - Sprue-like enteropathy [Unknown]
  - Gastrointestinal haemorrhage [Unknown]
  - Ascites [Unknown]

NARRATIVE: CASE EVENT DATE: 20090101
